FAERS Safety Report 20750220 (Version 1)
Quarter: 2022Q2

REPORT INFORMATION
  Report Type: Spontaneous
  Country: US (occurrence: None)
  Receive Date: 20220426
  Receipt Date: 20220426
  Transmission Date: 20220720
  Serious: Yes (Hospitalization)
  Sender: FDA-Public Use
  Company Number: None

PATIENT
  Age: 24 Year
  Sex: Male
  Weight: 61.1 kg

DRUGS (8)
  1. ONCASPAR [Suspect]
     Active Substance: PEGASPARGASE
     Dosage: OTHER STRENGTH : 7099 IU;?
     Dates: end: 20220221
  2. VINCRISTINE SULFATE [Suspect]
     Active Substance: VINCRISTINE SULFATE
     Dates: end: 20220228
  3. METHOTREXATE [Suspect]
     Active Substance: METHOTREXATE
     Dates: end: 20211227
  4. CYTARABINE [Suspect]
     Active Substance: CYTARABINE
     Dates: end: 20220217
  5. DAUNORUBICIN [Suspect]
     Active Substance: DAUNORUBICIN
     Dates: end: 20211118
  6. DEXAMETHASONE [Suspect]
     Active Substance: DEXAMETHASONE
     Dates: end: 20211116
  7. MERCAPTOPURINE [Suspect]
     Active Substance: MERCAPTOPURINE
     Dates: end: 20220213
  8. CYCLOPHOSPHAMIDE [Suspect]
     Active Substance: CYCLOPHOSPHAMIDE
     Dates: end: 20220131

REACTIONS (14)
  - Vomiting [None]
  - Febrile neutropenia [None]
  - Clostridium test positive [None]
  - Pleural effusion [None]
  - Atelectasis [None]
  - Lung consolidation [None]
  - Hepatocellular injury [None]
  - Hepatic steatosis [None]
  - Hepatomegaly [None]
  - Gallbladder oedema [None]
  - Hallucination [None]
  - Hypotension [None]
  - Heart rate increased [None]
  - Lung disorder [None]

NARRATIVE: CASE EVENT DATE: 20220417
